FAERS Safety Report 14085705 (Version 1)
Quarter: 2017Q4

REPORT INFORMATION
  Report Type: Spontaneous
  Country: US (occurrence: US)
  Receive Date: 20171013
  Receipt Date: 20171013
  Transmission Date: 20180321
  Serious: Yes (Hospitalization, Other)
  Sender: FDA-Public Use
  Company Number: US-ELI_LILLY_AND_COMPANY-US201710003392

PATIENT
  Sex: Male

DRUGS (2)
  1. HUMALOG [Suspect]
     Active Substance: INSULIN LISPRO
     Indication: PRODUCT USED FOR UNKNOWN INDICATION
     Dosage: 145 U, DAILY
     Dates: start: 1974
  2. HUMALOG [Suspect]
     Active Substance: INSULIN LISPRO
     Dosage: 145 U, DAILY

REACTIONS (5)
  - Pulse absent [Recovered/Resolved]
  - Shock [Recovered/Resolved]
  - Myocardial infarction [Recovered/Resolved]
  - Open fracture [Unknown]
  - Pain [Unknown]

NARRATIVE: CASE EVENT DATE: 2004
